FAERS Safety Report 7724931-X (Version None)
Quarter: 2011Q3

REPORT INFORMATION
  Report Type: 
  Country: None (occurrence: None)
  Receive Date: 20110901
  Receipt Date: 20110830
  Transmission Date: 20111222
  Serious: Yes (Hospitalization, Other)
  Sender: FDA-Public Use
  Company Number: US-PFIZER INC-2011147286

PATIENT
  Sex: Male
  Weight: 92.98 kg

DRUGS (4)
  1. CELEBREX [Suspect]
     Indication: PAIN
     Dosage: 200 MG, DAILY
     Route: 048
     Dates: start: 20110621, end: 20110625
  2. CELEBREX [Suspect]
  3. CELEBREX [Suspect]
     Indication: INFLAMMATION
  4. CELEBREX [Suspect]
     Indication: ARTHRITIS

REACTIONS (10)
  - HIP ARTHROPLASTY [None]
  - RHINORRHOEA [None]
  - FORMICATION [None]
  - DRUG INEFFECTIVE [None]
  - HYPERHIDROSIS [None]
  - MALAISE [None]
  - INSOMNIA [None]
  - NERVOUSNESS [None]
  - INFLUENZA LIKE ILLNESS [None]
  - FEELING OF BODY TEMPERATURE CHANGE [None]
